FAERS Safety Report 17983539 (Version 1)
Quarter: 2020Q3

REPORT INFORMATION
  Report Type: Report from Study
  Country: US (occurrence: US)
  Receive Date: 20200706
  Receipt Date: 20200706
  Transmission Date: 20201103
  Serious: Yes (Hospitalization, Other)
  Sender: FDA-Public Use
  Company Number: US-BAUSCH-BL-2020-018760

PATIENT
  Age: 70 Year
  Sex: Male

DRUGS (31)
  1. SPIRONOLACTONE. [Concomitant]
     Active Substance: SPIRONOLACTONE
     Indication: CHRONIC KIDNEY DISEASE
     Dates: end: 20170526
  2. LASIX [Concomitant]
     Active Substance: FUROSEMIDE
     Indication: PRODUCT USED FOR UNKNOWN INDICATION
     Route: 065
  3. HUMALOG [Concomitant]
     Active Substance: INSULIN LISPRO
     Indication: DIABETES MELLITUS
  4. LACTULOSE. [Concomitant]
     Active Substance: LACTULOSE
     Dosage: 10 GM/15 ML, UNITS DOSE OF 67.5 ML (45.002 G)
     Route: 048
     Dates: start: 20190329
  5. SODIUM BICARBONATE. [Concomitant]
     Active Substance: SODIUM BICARBONATE
     Indication: CHRONIC KIDNEY DISEASE
     Route: 048
     Dates: start: 20191212
  6. ASPIRIN. [Concomitant]
     Active Substance: ASPIRIN
     Indication: CARDIAC FAILURE CONGESTIVE
     Dosage: DELAYED RELEASE (TAKE ONE TABLET AS DIRECTED)
     Route: 048
     Dates: start: 20190404
  7. FOLIC ACID. [Concomitant]
     Active Substance: FOLIC ACID
     Indication: ANAEMIA FOLATE DEFICIENCY
     Route: 048
     Dates: start: 20180124
  8. LEVOTHYROXINE SODIUM. [Concomitant]
     Active Substance: LEVOTHYROXINE SODIUM
     Indication: HYPOTHYROIDISM
     Route: 065
  9. WARFARIN [Concomitant]
     Active Substance: WARFARIN
     Indication: THROMBOPHLEBITIS
  10. XIFAXAN [Suspect]
     Active Substance: RIFAXIMIN
     Indication: HEPATIC ENCEPHALOPATHY
     Route: 048
     Dates: end: 20170526
  11. LACTULOSE. [Concomitant]
     Active Substance: LACTULOSE
     Indication: HYPERCALCAEMIA
     Route: 065
  12. SPIRONOLACTONE. [Concomitant]
     Active Substance: SPIRONOLACTONE
     Indication: CARDIAC FAILURE CONGESTIVE
     Route: 048
     Dates: start: 20190606
  13. TRAMADOL HCL [Concomitant]
     Active Substance: TRAMADOL HYDROCHLORIDE
     Indication: PAIN
     Dosage: EVERY 4 HOURS AS NEEDED
     Route: 048
  14. NOVOLOG [Concomitant]
     Active Substance: INSULIN ASPART
     Dosage: FLEXPEN INJECTOR 100 (UNIT/ML), USED AD PER DIRECTED PER SLIDING SCALE UP TO 25 UNITS PER DAY
     Route: 058
     Dates: start: 20191021
  15. LANTUS SOLOSTAR [Concomitant]
     Active Substance: INSULIN GLARGINE
     Indication: DIABETES MELLITUS
     Dosage: 100 UNITS/ML, PEN?INJECTOR (40 UNITS AT BED TIME)
     Route: 058
     Dates: start: 20190404
  16. FUROSEMIDE. [Concomitant]
     Active Substance: FUROSEMIDE
     Indication: ESSENTIAL HYPERTENSION
     Route: 048
  17. LEVOTHYROXINE SODIUM. [Concomitant]
     Active Substance: LEVOTHYROXINE SODIUM
     Route: 048
     Dates: start: 20180124
  18. GABAPENTIN. [Concomitant]
     Active Substance: GABAPENTIN
     Indication: DIABETIC NEUROPATHY
  19. NOVOLOG [Concomitant]
     Active Substance: INSULIN ASPART
     Indication: DIABETES MELLITUS
     Dosage: FLEXPEN INJECTOR 100 (UNIT/ML), USED AD PER DIRECTED PER SLIDING SCALE UP TO 25 UNITS PER DAY
     Route: 058
     Dates: start: 20190503
  20. VITAMIN D3 [Concomitant]
     Active Substance: CHOLECALCIFEROL
     Indication: VITAMIN D DEFICIENCY
     Dosage: 50 MCG (2000 UT)
     Route: 048
     Dates: start: 20180726
  21. XIFAXAN [Suspect]
     Active Substance: RIFAXIMIN
     Route: 048
     Dates: start: 20180209
  22. LEVOTHYROXINE SODIUM. [Concomitant]
     Active Substance: LEVOTHYROXINE SODIUM
     Route: 065
  23. VITAMIN B12 [Concomitant]
     Active Substance: CYANOCOBALAMIN
     Indication: VITAMIN B12 DEFICIENCY
     Route: 048
  24. PIOGLITAZONE. [Concomitant]
     Active Substance: PIOGLITAZONE
     Indication: HEPATIC CIRRHOSIS
     Dates: end: 20170526
  25. HYDROCODONE [Concomitant]
     Active Substance: HYDROCODONE
     Indication: DIABETIC NEUROPATHY
     Dosage: AS NEEDED
  26. WARFARIN [Concomitant]
     Active Substance: WARFARIN
     Indication: DEEP VEIN THROMBOSIS
     Dates: start: 2016
  27. METFORMIN [Concomitant]
     Active Substance: METFORMIN HYDROCHLORIDE
     Indication: DIABETES MELLITUS
  28. LASIX [Concomitant]
     Active Substance: FUROSEMIDE
     Dosage: 1 TAB IN MORNING AND ONE HALF TABLET IN AFTERNOON
  29. CALMOSEPTINE [Concomitant]
     Active Substance: MENTHOL\ZINC OXIDE
     Indication: PRODUCT USED FOR UNKNOWN INDICATION
     Dosage: (0.44 ?20.6 PERCENT) APPLY THIN LAYER DAILY AND AS NEEDED
  30. GLITAZONE [Concomitant]
     Indication: PRODUCT USED FOR UNKNOWN INDICATION
  31. ROPINIROLE. [Concomitant]
     Active Substance: ROPINIROLE
     Indication: RESTLESS LEGS SYNDROME
     Dosage: AS NEEDED

REACTIONS (51)
  - Chronic kidney disease [Unknown]
  - Sleep apnoea syndrome [Unknown]
  - Hyperkalaemia [Unknown]
  - Fall [Unknown]
  - Hypokalaemia [Unknown]
  - Fatigue [Unknown]
  - Muscle spasms [Unknown]
  - Phimosis [Unknown]
  - Lactic acidosis [Unknown]
  - Antinuclear antibody positive [Unknown]
  - Hypernatraemia [Unknown]
  - Hepatic enzyme increased [Unknown]
  - Oedema peripheral [Unknown]
  - Amputee [Unknown]
  - Abnormal weight gain [Unknown]
  - Osteoarthritis [Unknown]
  - Skin ulcer [Unknown]
  - Hypothyroidism [Unknown]
  - Metabolic acidosis [Unknown]
  - Pain in extremity [Unknown]
  - Nail hypertrophy [Unknown]
  - Hyperlipidaemia [Unknown]
  - Therapy interrupted [Unknown]
  - Hepatic cirrhosis [Unknown]
  - Diabetes mellitus [Unknown]
  - Peripheral venous disease [Unknown]
  - Onychomycosis [Unknown]
  - Dysarthria [Unknown]
  - Mental status changes [Unknown]
  - Asthenia [Unknown]
  - Hepatic encephalopathy [Unknown]
  - Joint instability [Unknown]
  - Arthralgia [Unknown]
  - Essential hypertension [Unknown]
  - Acute kidney injury [Unknown]
  - Anaemia [Unknown]
  - Microalbuminuria [Unknown]
  - Parkinsonism [Unknown]
  - Hypercalcaemia [Unknown]
  - Otitis media [Unknown]
  - Coagulopathy [Unknown]
  - Insurance issue [Unknown]
  - Cardiac failure congestive [Unknown]
  - Thrombocytopenia [Unknown]
  - Restless legs syndrome [Unknown]
  - Vitamin B12 deficiency [Unknown]
  - Vitamin D deficiency [Unknown]
  - Diabetic neuropathy [Unknown]
  - Hyponatraemia [Unknown]
  - Anaemia folate deficiency [Unknown]
  - Inability to afford medication [Unknown]
